FAERS Safety Report 7445716-8 (Version None)
Quarter: 2011Q2

REPORT INFORMATION
  Report Type: 
  Country: None (occurrence: None)
  Receive Date: 20110429
  Receipt Date: 20100428
  Transmission Date: 20111010
  Serious: No
  Sender: FDA-Public Use
  Company Number: US-ASTRAZENECA-2010SE19111

PATIENT
  Age: 66 Year
  Sex: Female
  Weight: 84.8 kg

DRUGS (6)
  1. LISINOPRIL [Concomitant]
  2. NEXIUM [Suspect]
     Indication: GASTROOESOPHAGEAL REFLUX DISEASE
     Route: 048
     Dates: start: 20100201
  3. ALLEGRA [Concomitant]
  4. LEVOTHYROXINE SODIUM [Concomitant]
  5. DARVOCET [Concomitant]
  6. FLEXERIL [Concomitant]

REACTIONS (4)
  - FLATULENCE [None]
  - ABDOMINAL DISTENSION [None]
  - HYPOTENSION [None]
  - POLYURIA [None]
